FAERS Safety Report 4698031-X (Version None)
Quarter: 2005Q2

REPORT INFORMATION
  Report Type: 
  Country: None (occurrence: None)
  Receive Date: 20050621
  Receipt Date: 20050607
  Transmission Date: 20051028
  Serious: Yes (Hospitalization, Disabling)
  Sender: FDA-Public Use
  Company Number: 11471

PATIENT
  Age: 72 Year
  Sex: Female

DRUGS (5)
  1. FLUOROURACIL [Suspect]
     Indication: BILIARY NEOPLASM
     Dosage: 375 MG/M2 OTH
     Dates: start: 20050228
  2. LEUCOVORIN [Suspect]
     Indication: BILIARY NEOPLASM
     Dosage: 25 MG/M2 OTH,IV
     Route: 042
     Dates: start: 20050228
  3. INSULIN [Concomitant]
  4. AMLODIPINE [Concomitant]
  5. TRIMETAZIPINE [Concomitant]

REACTIONS (2)
  - FEBRILE NEUTROPENIA [None]
  - HYPERTHERMIA [None]
